FAERS Safety Report 9749346 (Version 1)
Quarter: 2013Q4

REPORT INFORMATION
  Report Type: Spontaneous
  Country: US (occurrence: None)
  Receive Date: 20131211
  Receipt Date: 20131211
  Transmission Date: 20140711
  Serious: No
  Sender: FDA-Public Use
  Company Number: None

PATIENT
  Age: 39 Year
  Sex: Female

DRUGS (17)
  1. TECFIDERA, 240 MG, BIOGEN IDEC [Suspect]
     Indication: MULTIPLE SCLEROSIS
     Route: 048
     Dates: start: 20130530, end: 20131206
  2. PROVIGIL [Concomitant]
  3. NORTRIPTYLINE [Concomitant]
  4. LYRICA [Concomitant]
  5. REQUIP [Concomitant]
  6. KCL [Concomitant]
  7. TIZANIDINE [Concomitant]
  8. MISOPROSTOL [Concomitant]
  9. LAMICTAL [Concomitant]
  10. SINGULAIR [Concomitant]
  11. WARFARIN [Concomitant]
  12. FLOMAX [Concomitant]
  13. MINOCYCLINE [Concomitant]
  14. NEXIUM [Concomitant]
  15. PERCOCET [Concomitant]
  16. LORTAB [Concomitant]
  17. XANAX [Concomitant]

REACTIONS (1)
  - Diarrhoea [None]
